FAERS Safety Report 5085688-7 (Version None)
Quarter: 2006Q3

REPORT INFORMATION
  Report Type: 
  Country: None (occurrence: None)
  Receive Date: 20060822
  Receipt Date: 20060811
  Transmission Date: 20061208
  Serious: Yes (Other)
  Sender: FDA-Public Use
  Company Number: JP-JNJFOC-20060800063

PATIENT
  Age: 9 Decade
  Sex: Male

DRUGS (4)
  1. DUROTEP [Suspect]
     Indication: CANCER PAIN
     Route: 062
  2. OTHER ANTIALLERGIC AGENTS [Concomitant]
     Route: 065
  3. OTHER HYPNOTICS AND SEDATIVES [Concomitant]
     Route: 065
  4. H2-RECEPTER ANTAGONISTS [Concomitant]
     Route: 065

REACTIONS (3)
  - CONFUSIONAL STATE [None]
  - DELIRIUM [None]
  - HALLUCINATION [None]
